FAERS Safety Report 7823648-0 (Version None)
Quarter: 2011Q4

REPORT INFORMATION
  Report Type: 
  Country: None (occurrence: None)
  Receive Date: 20111019
  Receipt Date: 20111019
  Transmission Date: 20120403
  Serious: Yes (Hospitalization, Other)
  Sender: FDA-Public Use
  Company Number: None

PATIENT
  Age: 87 Year
  Sex: Female
  Weight: 660.43 kg

DRUGS (1)
  1. VEMURAFENIB (PLX40-32) [Suspect]
     Indication: METASTATIC MALIGNANT MELANOMA
     Dosage: 960 MG
     Route: 048
     Dates: start: 20110316, end: 20111017

REACTIONS (3)
  - CARDIAC FAILURE CONGESTIVE [None]
  - ATRIAL FIBRILLATION [None]
  - PLEURAL EFFUSION [None]
